FAERS Safety Report 11517914 (Version 2)
Quarter: 2016Q2

REPORT INFORMATION
  Report Type: Spontaneous
  Country: US (occurrence: US)
  Receive Date: 20150917
  Receipt Date: 20160629
  Transmission Date: 20160815
  Serious: No
  Sender: FDA-Public Use
  Company Number: US-RB-077871-15

PATIENT
  Age: 2 Year
  Sex: Male

DRUGS (1)
  1. MUCINEX [Suspect]
     Active Substance: GUAIFENESIN
     Indication: PRODUCT USED FOR UNKNOWN INDICATION
     Dosage: 600MG. ,FREQUENCY UNK
     Route: 048
     Dates: start: 20150523

REACTIONS (2)
  - No adverse event [Unknown]
  - Accidental exposure to product by child [Unknown]
